FAERS Safety Report 9224686 (Version 3)
Quarter: 2013Q2

REPORT INFORMATION
  Report Type: Spontaneous
  Country: GB (occurrence: GB)
  Receive Date: 20130411
  Receipt Date: 20130606
  Transmission Date: 20140414
  Serious: Yes (Other)
  Sender: FDA-Public Use
  Company Number: GB-BRISTOL-MYERS SQUIBB COMPANY-18747691

PATIENT
  Age: 52 Year
  Sex: Female

DRUGS (4)
  1. BYDUREON [Suspect]
     Indication: TYPE 2 DIABETES MELLITUS
     Dosage: 1DF:1 INJECTION,LAST INJ ON 21MAR13
     Route: 058
     Dates: start: 20130306, end: 20130402
  2. METFORMIN HCL [Suspect]
  3. LANTUS [Suspect]
  4. NOVORAPID [Suspect]

REACTIONS (4)
  - Blood glucose increased [Unknown]
  - Injection site mass [Unknown]
  - Injection site pruritus [Unknown]
  - Injection site inflammation [Unknown]
